FAERS Safety Report 7231366-5 (Version None)
Quarter: 2011Q1

REPORT INFORMATION
  Report Type: 
  Country: None (occurrence: None)
  Receive Date: 20110118
  Receipt Date: 20101210
  Transmission Date: 20110831
  Serious: Yes (Other)
  Sender: FDA-Public Use
  Company Number: IE-MERCK-1009GBR00088

PATIENT
  Age: 50 Year
  Sex: Male

DRUGS (13)
  1. CITRIC ACID [Suspect]
     Route: 065
  2. FERRIC OXIDE [Suspect]
     Route: 065
  3. STARCH [Suspect]
     Route: 065
  4. HYDROXYPROPYL CELLULOSE [Suspect]
     Route: 065
  5. MAGNESIUM STEARATE [Suspect]
     Route: 065
  6. HYPROMELLOSE [Suspect]
     Route: 065
  7. ASCORBIC ACID [Suspect]
     Route: 065
  8. LACTOSE [Suspect]
     Route: 065
  9. ZOCOR [Suspect]
     Indication: BLOOD CHOLESTEROL INCREASED
     Route: 048
     Dates: start: 20100623, end: 20100909
  10. CELLULOSE, MICROCRYSTALLINE [Suspect]
     Route: 065
  11. TALC [Suspect]
     Route: 065
  12. BUTYLATED HYDROXYANISOLE [Suspect]
     Route: 065
  13. TITANIUM DIOXIDE [Suspect]
     Route: 065

REACTIONS (2)
  - PARAESTHESIA [None]
  - HYPOAESTHESIA [None]
